FAERS Safety Report 25473585 (Version 1)
Quarter: 2025Q2

REPORT INFORMATION
  Report Type: Spontaneous
  Country: PT (occurrence: PT)
  Receive Date: 20250624
  Receipt Date: 20250624
  Transmission Date: 20250716
  Serious: Yes (Disabling)
  Sender: MYLAN
  Company Number: None

PATIENT
  Age: 64 Year
  Sex: Male

DRUGS (24)
  1. ALLOPURINOL [Suspect]
     Active Substance: ALLOPURINOL
     Indication: Prophylaxis
     Dosage: 300 MILLIGRAM, QD
     Dates: start: 20250217, end: 20250529
  2. ALLOPURINOL [Suspect]
     Active Substance: ALLOPURINOL
     Dosage: 300 MILLIGRAM, QD
     Route: 048
     Dates: start: 20250217, end: 20250529
  3. ALLOPURINOL [Suspect]
     Active Substance: ALLOPURINOL
     Dosage: 300 MILLIGRAM, QD
     Route: 048
     Dates: start: 20250217, end: 20250529
  4. ALLOPURINOL [Suspect]
     Active Substance: ALLOPURINOL
     Dosage: 300 MILLIGRAM, QD
     Dates: start: 20250217, end: 20250529
  5. SULFAMETHOXAZOLE\TRIMETHOPRIM [Suspect]
     Active Substance: SULFAMETHOXAZOLE\TRIMETHOPRIM
     Indication: Prophylaxis
     Dosage: 960 MILLIGRAM, 3XW, (3X/WEEK)
     Dates: start: 20250217, end: 20250529
  6. SULFAMETHOXAZOLE\TRIMETHOPRIM [Suspect]
     Active Substance: SULFAMETHOXAZOLE\TRIMETHOPRIM
     Dosage: 960 MILLIGRAM, 3XW, (3X/WEEK)
     Route: 065
     Dates: start: 20250217, end: 20250529
  7. SULFAMETHOXAZOLE\TRIMETHOPRIM [Suspect]
     Active Substance: SULFAMETHOXAZOLE\TRIMETHOPRIM
     Dosage: 960 MILLIGRAM, 3XW, (3X/WEEK)
     Route: 065
     Dates: start: 20250217, end: 20250529
  8. SULFAMETHOXAZOLE\TRIMETHOPRIM [Suspect]
     Active Substance: SULFAMETHOXAZOLE\TRIMETHOPRIM
     Dosage: 960 MILLIGRAM, 3XW, (3X/WEEK)
     Dates: start: 20250217, end: 20250529
  9. DARATUMUMAB [Concomitant]
     Active Substance: DARATUMUMAB
     Indication: Plasma cell myeloma
  10. DARATUMUMAB [Concomitant]
     Active Substance: DARATUMUMAB
     Route: 065
  11. DARATUMUMAB [Concomitant]
     Active Substance: DARATUMUMAB
     Route: 065
  12. DARATUMUMAB [Concomitant]
     Active Substance: DARATUMUMAB
  13. BORTEZOMIB [Concomitant]
     Active Substance: BORTEZOMIB
     Indication: Plasma cell myeloma
  14. BORTEZOMIB [Concomitant]
     Active Substance: BORTEZOMIB
     Route: 065
  15. BORTEZOMIB [Concomitant]
     Active Substance: BORTEZOMIB
     Route: 065
  16. BORTEZOMIB [Concomitant]
     Active Substance: BORTEZOMIB
  17. LENALIDOMIDE [Concomitant]
     Active Substance: LENALIDOMIDE
     Indication: Plasma cell myeloma
  18. LENALIDOMIDE [Concomitant]
     Active Substance: LENALIDOMIDE
     Route: 065
  19. LENALIDOMIDE [Concomitant]
     Active Substance: LENALIDOMIDE
     Route: 065
  20. LENALIDOMIDE [Concomitant]
     Active Substance: LENALIDOMIDE
  21. DEXAMETHASONE [Concomitant]
     Active Substance: DEXAMETHASONE
     Indication: Plasma cell myeloma
  22. DEXAMETHASONE [Concomitant]
     Active Substance: DEXAMETHASONE
     Route: 065
  23. DEXAMETHASONE [Concomitant]
     Active Substance: DEXAMETHASONE
     Route: 065
  24. DEXAMETHASONE [Concomitant]
     Active Substance: DEXAMETHASONE

REACTIONS (2)
  - Rash [Recovered/Resolved]
  - Toxic skin eruption [Recovered/Resolved]

NARRATIVE: CASE EVENT DATE: 20250515
